FAERS Safety Report 4351042-6 (Version None)
Quarter: 2004Q2

REPORT INFORMATION
  Report Type: 
  Country: None (occurrence: None)
  Receive Date: 20040428
  Receipt Date: 20040213
  Transmission Date: 20050107
  Serious: Yes (Hospitalization)
  Sender: FDA-Public Use
  Company Number: 358728

PATIENT
  Age: 52 Year
  Sex: Female

DRUGS (5)
  1. NAPROXEN [Suspect]
     Indication: DRUG USE FOR UNKNOWN INDICATION
  2. ALEVE [Suspect]
     Indication: ARTHRITIS
     Dosage: ORAL
     Route: 048
  3. ASPIRIN [Suspect]
     Indication: DRUG USE FOR UNKNOWN INDICATION
  4. MOTRIN [Suspect]
     Indication: DRUG USE FOR UNKNOWN INDICATION
  5. CONTRACEPTIVE (CONTRACEPTIVE) [Concomitant]

REACTIONS (2)
  - GASTRIC HAEMORRHAGE [None]
  - INTESTINAL ULCER [None]
